FAERS Safety Report 5603206-9 (Version None)
Quarter: 2008Q1

REPORT INFORMATION
  Report Type: 
  Country: None (occurrence: None)
  Receive Date: 20080125
  Receipt Date: 20080116
  Transmission Date: 20080703
  Serious: Yes (Other)
  Sender: FDA-Public Use
  Company Number: AR-PFIZER INC-2008004588

PATIENT
  Age: 40 Year
  Sex: Female

DRUGS (3)
  1. ZELDOX (CAPSULES) [Suspect]
     Indication: MANIA
     Route: 048
  2. CLONAZEPAM [Concomitant]
     Route: 048
  3. TRILEPTAL [Concomitant]
     Route: 048

REACTIONS (1)
  - INTRAOCULAR PRESSURE INCREASED [None]
